FAERS Safety Report 21809659 (Version 1)
Quarter: 2023Q1

REPORT INFORMATION
  Report Type: Other
  Country: SG (occurrence: SG)
  Receive Date: 20230103
  Receipt Date: 20230103
  Transmission Date: 20230418
  Serious: Yes (Hospitalization, Disabling)
  Sender: FDA-Public Use
  Company Number: SG-DEXPHARM-20222717

PATIENT
  Age: 44 Year
  Sex: Male

DRUGS (1)
  1. CHLORHEXIDINE GLUCONATE\ISOPROPYL ALCOHOL [Suspect]
     Active Substance: CHLORHEXIDINE GLUCONATE\ISOPROPYL ALCOHOL
     Indication: Infection prophylaxis
     Dosage: CHLORHEXIDINE 2%W/V AND ISOPROPYL-ALCOHOL 70% V/V

REACTIONS (2)
  - Dermatitis contact [Recovering/Resolving]
  - Cellulitis [Recovering/Resolving]
